FAERS Safety Report 9373103 (Version 1)
Quarter: 2013Q2

REPORT INFORMATION
  Report Type: Spontaneous
  Country: US (occurrence: US)
  Receive Date: 20130627
  Receipt Date: 20130627
  Transmission Date: 20140414
  Serious: No
  Sender: FDA-Public Use
  Company Number: US-ELI_LILLY_AND_COMPANY-US201306007132

PATIENT
  Sex: Male

DRUGS (4)
  1. CIALIS [Suspect]
     Indication: ANXIETY
     Dosage: 20 MG, UNKNOWN
  2. CIALIS [Suspect]
     Dosage: 5 MG, QD
  3. CIALIS [Suspect]
     Dosage: 1 DF, UNKNOWN
  4. TESTOSTERONE [Concomitant]
     Dosage: 1 DF, UNKNOWN
     Route: 030

REACTIONS (4)
  - Intraocular pressure test [Unknown]
  - Ocular hyperaemia [Unknown]
  - Wrong technique in drug usage process [Unknown]
  - Off label use [Unknown]
